FAERS Safety Report 15550149 (Version 1)
Quarter: 2018Q4

REPORT INFORMATION
  Report Type: Spontaneous
  Country: GB (occurrence: GB)
  Receive Date: 20181025
  Receipt Date: 20181025
  Transmission Date: 20190205
  Serious: Yes (Other)
  Sender: FDA-Public Use
  Company Number: GB-AUROBINDO-AUR-APL-2018-051808

PATIENT
  Age: 31 Year
  Sex: Female
  Weight: 50.8 kg

DRUGS (1)
  1. NAPROXEN. [Suspect]
     Active Substance: NAPROXEN
     Indication: SPONDYLITIS
     Dosage: 2 DOSAGE FORM, DAILY
     Route: 048
     Dates: start: 20180924, end: 20180930

REACTIONS (11)
  - Muscle spasms [Unknown]
  - Nightmare [Not Recovered/Not Resolved]
  - Thirst [Not Recovered/Not Resolved]
  - Fatigue [Not Recovered/Not Resolved]
  - Photosensitivity reaction [Unknown]
  - Headache [Not Recovered/Not Resolved]
  - Abdominal distension [Unknown]
  - Abdominal pain upper [Not Recovered/Not Resolved]
  - Melaena [Not Recovered/Not Resolved]
  - Flatulence [Unknown]
  - Hunger [Unknown]

NARRATIVE: CASE EVENT DATE: 20180925
